FAERS Safety Report 24747538 (Version 1)
Quarter: 2024Q4

REPORT INFORMATION
  Report Type: Report from Study
  Country: US (occurrence: US)
  Receive Date: 20241218
  Receipt Date: 20241218
  Transmission Date: 20250114
  Serious: Yes (Other)
  Sender: MERCK
  Company Number: US-009507513-2409USA002577

PATIENT
  Age: 33 Year
  Sex: Female
  Weight: 108.84 kg

DRUGS (5)
  1. SOTATERCEPT [Suspect]
     Active Substance: SOTATERCEPT
     Indication: Pulmonary arterial hypertension
     Dosage: STRENGTH 45 MG; 0.7ML UNDER THE SKIN FOR 1 DOSE, THEN INCREASE TO 1.5ML FOR TARGET DOSE
     Route: 058
     Dates: start: 202409
  2. WINREVAIR [Suspect]
     Active Substance: SOTATERCEPT-CSRK
     Indication: Pulmonary arterial hypertension
     Dosage: 1.5 MILLILITER, Q3W
     Route: 058
     Dates: start: 20241208, end: 20241208
  3. REMODULIN [Concomitant]
     Active Substance: TREPROSTINIL
     Indication: Pulmonary arterial hypertension
     Dosage: UNK
     Dates: start: 202202
  4. REMODULIN [Concomitant]
     Active Substance: TREPROSTINIL
     Dosage: 0.05650 ?G/KG, CONTINUOUS
     Route: 058
     Dates: start: 202310
  5. AMBRISENTAN [Concomitant]
     Active Substance: AMBRISENTAN

REACTIONS (7)
  - Injection site thrombosis [Unknown]
  - Cough [Unknown]
  - Dyspnoea exertional [Unknown]
  - Injection site erythema [Unknown]
  - Injection site swelling [Unknown]
  - Injection site bruising [Unknown]
  - Haemoglobin increased [Unknown]

NARRATIVE: CASE EVENT DATE: 20240901
